FAERS Safety Report 4802136-X (Version None)
Quarter: 2005Q4

REPORT INFORMATION
  Report Type: 
  Country: None (occurrence: None)
  Receive Date: 20051011
  Receipt Date: 20050928
  Transmission Date: 20060501
  Serious: Yes (Other)
  Sender: FDA-Public Use
  Company Number: GXKR2005US01712

PATIENT
  Age: 83 Year
  Sex: Female

DRUGS (8)
  1. METHADONE HCL [Suspect]
     Indication: BACK PAIN
     Dosage: SEE IMAGE
  2. DEXTROMETHORPHAN HYDROBROMIDE [Suspect]
     Indication: COUGH
     Dosage: 30 MG, BID
  3. HYDROCODONE BITARTRATE + ACETAMINOPHEN [Concomitant]
  4. ESCITALOPRAM OXALATE [Concomitant]
  5. IPRATROPIUM BROMIDE [Concomitant]
  6. METOCLOPRAMIDE [Concomitant]
  7. METOLAZONE [Concomitant]
  8. WARFARIN SODIUM [Concomitant]

REACTIONS (10)
  - CONFUSIONAL STATE [None]
  - DELIRIUM [None]
  - DEPRESSED MOOD [None]
  - DISTURBANCE IN ATTENTION [None]
  - DRUG INTERACTION [None]
  - FALL [None]
  - IMPAIRED SELF-CARE [None]
  - LETHARGY [None]
  - MEMORY IMPAIRMENT [None]
  - STARING [None]
